FAERS Safety Report 14686747 (Version 5)
Quarter: 2020Q1

REPORT INFORMATION
  Report Type: Report from Study
  Country: US (occurrence: US)
  Receive Date: 20180327
  Receipt Date: 20200131
  Transmission Date: 20200409
  Serious: Yes (Death, Hospitalization, Other)
  Sender: FDA-Public Use
  Company Number: US-ACTELION-A-NJ2018-165749

PATIENT
  Age: 81 Year
  Sex: Male

DRUGS (5)
  1. OPSUMIT [Suspect]
     Active Substance: MACITENTAN
     Indication: PULMONARY HYPERTENSION
     Dosage: 10 MG, QD
     Route: 048
     Dates: start: 20171219
  2. SILDENAFIL. [Concomitant]
     Active Substance: SILDENAFIL
     Dosage: 20 MG, TID
  3. WARFARIN [Concomitant]
     Active Substance: WARFARIN
     Dosage: 5 MG, QD
  4. PREDNISONE. [Concomitant]
     Active Substance: PREDNISONE
     Dosage: UNK
  5. SILDENAFIL. [Concomitant]
     Active Substance: SILDENAFIL
     Dosage: 20 MG, QD

REACTIONS (8)
  - Death [Fatal]
  - Deafness [Unknown]
  - Pruritus [Unknown]
  - Headache [Unknown]
  - Angioplasty [Recovering/Resolving]
  - Rash [Unknown]
  - Oedema [Unknown]
  - Product dose omission [Unknown]

NARRATIVE: CASE EVENT DATE: 20180523
